FAERS Safety Report 18586569 (Version 1)
Quarter: 2020Q4

REPORT INFORMATION
  Report Type: Spontaneous
  Country: US (occurrence: US)
  Receive Date: 20201204
  Receipt Date: 20201204
  Transmission Date: 20210114
  Serious: No
  Sender: FDA-Public Use
  Company Number: None

PATIENT
  Age: 69 Year
  Sex: Female

DRUGS (1)
  1. SOFOSBUVIR AND VELPATASVIR [Suspect]
     Active Substance: SOFOSBUVIR\VELPATASVIR
     Dosage: ?          OTHER DOSE:400-100MG;?
     Route: 048
     Dates: start: 202011

REACTIONS (8)
  - Insomnia [None]
  - Blepharospasm [None]
  - Dizziness [None]
  - Abdominal pain [None]
  - Fatigue [None]
  - Mood altered [None]
  - Memory impairment [None]
  - Asthenia [None]

NARRATIVE: CASE EVENT DATE: 20201109
